FAERS Safety Report 7033015-8 (Version None)
Quarter: 2010Q4

REPORT INFORMATION
  Report Type: 
  Country: None (occurrence: None)
  Receive Date: 20101007
  Receipt Date: 20100928
  Transmission Date: 20110411
  Serious: Yes (Other)
  Sender: FDA-Public Use
  Company Number: DE-PFIZER INC-2010122892

PATIENT
  Age: 63 Year
  Sex: Female

DRUGS (3)
  1. XALATAN [Suspect]
     Dosage: UNK
  2. ATENOLOL [Concomitant]
     Dosage: UNK
  3. RAMIPRIL [Concomitant]
     Dosage: UNK

REACTIONS (1)
  - HAEMORRHAGE [None]
